FAERS Safety Report 6793138-5 (Version None)
Quarter: 2010Q2

REPORT INFORMATION
  Report Type: 
  Country: None (occurrence: None)
  Receive Date: 20100624
  Receipt Date: 20090601
  Transmission Date: 20101027
  Serious: Yes (Death)
  Sender: FDA-Public Use
  Company Number: US-MYLANLABS-2009S1009758

PATIENT
  Age: 46 Year
  Sex: Male

DRUGS (6)
  1. CLOZAPINE [Suspect]
     Indication: SCHIZOPHRENIA
     Route: 048
     Dates: end: 20090501
  2. CLOZAPINE [Suspect]
     Route: 048
     Dates: end: 20090501
  3. DOCUSATE [Concomitant]
     Route: 048
  4. ATENOLOL [Concomitant]
     Route: 048
  5. CITALOPRAM [Concomitant]
     Route: 048
  6. M.V.I. [Concomitant]
     Route: 048

REACTIONS (1)
  - DEATH [None]
